FAERS Safety Report 6907266-4 (Version None)
Quarter: 2010Q3

REPORT INFORMATION
  Report Type: 
  Country: None (occurrence: None)
  Receive Date: 20100730
  Receipt Date: 20100717
  Transmission Date: 20110219
  Serious: Yes (Hospitalization, Other)
  Sender: FDA-Public Use
  Company Number: 7011393

PATIENT
  Age: 44 Year
  Sex: Female

DRUGS (7)
  1. REBIF [Suspect]
     Indication: MULTIPLE SCLEROSIS
     Dosage: 8.8 MCG, 3 IN 1 WK, SUBCUTANEOUS
     Route: 058
     Dates: start: 20100701, end: 20100715
  2. SOLU-MEDROL [Suspect]
     Indication: OPTIC NEURITIS
     Dates: start: 20100715, end: 20100717
  3. METHADONE HCL [Concomitant]
  4. TRAZODONE HCL [Concomitant]
  5. PROZAC [Concomitant]
  6. NEURONTIN [Concomitant]
  7. CALCIUM SUPPLEMENT (CALCIUM) [Concomitant]

REACTIONS (9)
  - ABDOMINAL DISTENSION [None]
  - CHEST DISCOMFORT [None]
  - CHOLELITHIASIS [None]
  - DYSPNOEA [None]
  - HEART RATE DECREASED [None]
  - HYPERTENSION [None]
  - MALAISE [None]
  - OPTIC NEURITIS [None]
  - PULMONARY OEDEMA [None]
